FAERS Safety Report 17395957 (Version 1)
Quarter: 2020Q1

REPORT INFORMATION
  Report Type: Spontaneous
  Country: US (occurrence: US)
  Receive Date: 20200207
  Receipt Date: 20200207
  Transmission Date: 20200409
  Serious: Yes (Other)
  Sender: FDA-Public Use
  Company Number: None

PATIENT
  Age: 8 Year
  Sex: Male
  Weight: 41.6 kg

DRUGS (1)
  1. LORAZEPAM. [Suspect]
     Active Substance: LORAZEPAM

REACTIONS (5)
  - Self-injurious ideation [None]
  - Paradoxical drug reaction [None]
  - Delusion [None]
  - Suicidal ideation [None]
  - Emotional poverty [None]

NARRATIVE: CASE EVENT DATE: 20200205
